FAERS Safety Report 4439871-1 (Version None)
Quarter: 2004Q3

REPORT INFORMATION
  Report Type: 
  Country: None (occurrence: None)
  Receive Date: 20040902
  Receipt Date: 20030929
  Transmission Date: 20050211
  Serious: Yes (Disabling)
  Sender: FDA-Public Use
  Company Number: US-MERCK-0310USA00138

PATIENT
  Age: 55 Year
  Sex: Female
  Weight: 100 kg

DRUGS (7)
  1. ATENOLOL [Concomitant]
     Indication: HYPERTENSION
     Route: 065
     Dates: start: 20011218
  2. CELEBREX [Concomitant]
     Indication: NECK PAIN
     Route: 065
  3. FLEXERIL [Concomitant]
     Indication: NECK PAIN
     Route: 065
  4. ARTHROTEC [Concomitant]
     Indication: NECK PAIN
     Route: 048
  5. HYDRODIURIL [Concomitant]
     Route: 048
     Dates: start: 19970722, end: 20011218
  6. VIOXX [Suspect]
     Indication: ARTHRITIS
     Route: 048
     Dates: start: 19990101
  7. VIOXX [Suspect]
     Indication: PAIN
     Route: 048
     Dates: start: 19990101

REACTIONS (52)
  - ABDOMINAL PAIN [None]
  - ACCIDENT [None]
  - ACROCHORDON [None]
  - ANGIONEUROTIC OEDEMA [None]
  - ANXIETY [None]
  - ARTHRALGIA [None]
  - ARTHRITIS [None]
  - BACK INJURY [None]
  - BENIGN NEOPLASM OF SKIN [None]
  - BLISTER [None]
  - BLOOD PRESSURE INADEQUATELY CONTROLLED [None]
  - CHEILITIS [None]
  - DEPRESSION [None]
  - DRUG HYPERSENSITIVITY [None]
  - DYSFUNCTIONAL UTERINE BLEEDING [None]
  - EMOTIONAL DISTRESS [None]
  - FAECES DISCOLOURED [None]
  - FIBROMYALGIA [None]
  - FURUNCLE [None]
  - GASTRIC DISORDER [None]
  - GASTRITIS [None]
  - GASTROOESOPHAGEAL REFLUX DISEASE [None]
  - GOUT [None]
  - GOUTY ARTHRITIS [None]
  - HEAD INJURY [None]
  - HEADACHE [None]
  - HERPES SIMPLEX [None]
  - HERPES VIRUS INFECTION [None]
  - HYPERKERATOSIS [None]
  - HYPERSENSITIVITY [None]
  - HYPERTENSION [None]
  - INJURY [None]
  - INTERVERTEBRAL DISC PROTRUSION [None]
  - LATEX ALLERGY [None]
  - MUSCLE SPASMS [None]
  - MUSCLE STRAIN [None]
  - NECK PAIN [None]
  - NODULE ON EXTREMITY [None]
  - OEDEMA MOUTH [None]
  - OEDEMA PERIPHERAL [None]
  - PAIN TRAUMA ACTIVATED [None]
  - PRURITUS [None]
  - RHINITIS [None]
  - RHINITIS ALLERGIC [None]
  - ROAD TRAFFIC ACCIDENT [None]
  - SKIN NODULE [None]
  - SKIN PAPILLOMA [None]
  - SLEEP APNOEA SYNDROME [None]
  - STOMATITIS [None]
  - SWELLING FACE [None]
  - TOOTH DISORDER [None]
  - WEIGHT INCREASED [None]
